FAERS Safety Report 4487250-3 (Version None)
Quarter: 2004Q4

REPORT INFORMATION
  Report Type: 
  Country: None (occurrence: None)
  Receive Date: 20041022
  Receipt Date: 20041015
  Transmission Date: 20050328
  Serious: Yes (Hospitalization)
  Sender: FDA-Public Use
  Company Number: 200412887GDS

PATIENT
  Age: 26 Year
  Sex: Male

DRUGS (2)
  1. ALKA-SELTZER [Suspect]
     Dosage: 650 MG, TOTAL DAILY, ORAL
     Route: 048
     Dates: start: 20041002
  2. ALCOHOL [Suspect]

REACTIONS (3)
  - DRUG INTERACTION [None]
  - GASTROINTESTINAL HAEMORRHAGE [None]
  - MALLORY-WEISS SYNDROME [None]
